FAERS Safety Report 8795350 (Version 2)
Quarter: 2015Q2

REPORT INFORMATION
  Report Type: Report from Study
  Country: US (occurrence: US)
  Receive Date: 20120917
  Receipt Date: 20150629
  Transmission Date: 20150821
  Serious: Yes (Death)
  Sender: FDA-Public Use
  Company Number: US-ROCHE-1128682

PATIENT
  Age: 58 Year
  Sex: Male

DRUGS (16)
  1. AVASTIN [Suspect]
     Active Substance: BEVACIZUMAB
     Indication: COLON CANCER
     Route: 042
  2. AVASTIN [Suspect]
     Active Substance: BEVACIZUMAB
     Route: 042
  3. NEUPOGEN [Concomitant]
     Active Substance: FILGRASTIM
     Route: 042
  4. LEUCOVORIN [Concomitant]
     Active Substance: LEUCOVORIN
     Route: 042
  5. ATROPINE SULFATE. [Concomitant]
     Active Substance: ATROPINE SULFATE
     Route: 042
  6. MIRALAX [Concomitant]
     Active Substance: POLYETHYLENE GLYCOL 3350
     Route: 048
  7. AVASTIN [Suspect]
     Active Substance: BEVACIZUMAB
     Route: 042
  8. NEUPOGEN [Concomitant]
     Active Substance: FILGRASTIM
     Route: 042
  9. AVASTIN [Suspect]
     Active Substance: BEVACIZUMAB
     Indication: COLON CANCER
     Route: 042
     Dates: start: 20070829
  10. ALOXI [Concomitant]
     Active Substance: PALONOSETRON HYDROCHLORIDE
     Route: 042
  11. 5-FLUOROURACIL [Concomitant]
     Active Substance: FLUOROURACIL
     Route: 042
  12. PERCOCET [Concomitant]
     Active Substance: ACETAMINOPHEN\OXYCODONE HYDROCHLORIDE
     Dosage: 5-325 MG
     Route: 048
  13. DEXAMETHASONE SODIUM PHOSPHATE. [Concomitant]
     Active Substance: DEXAMETHASONE SODIUM PHOSPHATE
     Route: 042
  14. FOLINIC ACID [Concomitant]
     Active Substance: LEUCOVORIN
  15. SIMETHICONE [Concomitant]
     Active Substance: DIMETHICONE\SILICON DIOXIDE\SIMETHICONE
     Route: 048
  16. BENADRYL [Concomitant]
     Active Substance: DIPHENHYDRAMINE HYDROCHLORIDE
     Route: 042

REACTIONS (19)
  - Death [Fatal]
  - Proctalgia [Unknown]
  - Bone pain [Unknown]
  - Haematochezia [Unknown]
  - Erythema [Recovered/Resolved]
  - Abdominal pain [Unknown]
  - Disease progression [Unknown]
  - Peritoneal disorder [Unknown]
  - Fatigue [Unknown]
  - Lung disorder [Unknown]
  - Diarrhoea [Unknown]
  - Rash generalised [Unknown]
  - Neuropathy peripheral [Unknown]
  - Pollakiuria [Unknown]
  - Dysuria [Unknown]
  - Vomiting [Unknown]
  - Constipation [Unknown]
  - Proteinuria [Unknown]
  - Pruritus [Unknown]

NARRATIVE: CASE EVENT DATE: 200807
